FAERS Safety Report 6496634-3 (Version None)
Quarter: 2009Q4

REPORT INFORMATION
  Report Type: 
  Country: None (occurrence: None)
  Receive Date: 20091210
  Receipt Date: 20091120
  Transmission Date: 20100525
  Serious: Yes (Other)
  Sender: FDA-Public Use
  Company Number: 000521

PATIENT
  Sex: Female
  Weight: 57 kg

DRUGS (4)
  1. PROSTAVASIN / 00501501/ (PROSTAVASIN) [Suspect]
     Indication: ARTERIAL OCCLUSIVE DISEASE
     Dosage: (20 ?G VIALS DOSE: 2X2 VIALS INTRAVENOUS (NOT OTHERWISE SPECIFIED)
     Route: 042
  2. ADALAT [Concomitant]
  3. RANITIDINE [Concomitant]
  4. ACETYLSALICYLIC ACID SRT [Concomitant]

REACTIONS (1)
  - ANAPHYLACTIC SHOCK [None]
